FAERS Safety Report 16172785 (Version 7)
Quarter: 2020Q3

REPORT INFORMATION
  Report Type: Spontaneous
  Country: US (occurrence: US)
  Receive Date: 20190409
  Receipt Date: 20200903
  Transmission Date: 20201102
  Serious: No
  Sender: FDA-Public Use
  Company Number: US-TAKEDA-2019TUS018895

PATIENT
  Sex: Female
  Weight: 132 kg

DRUGS (1)
  1. NINLARO [Suspect]
     Active Substance: IXAZOMIB CITRATE
     Indication: AMYLOIDOSIS
     Dosage: 4 MILLIGRAM
     Route: 048
     Dates: start: 20190308

REACTIONS (9)
  - Pruritus [Unknown]
  - Herpes zoster [Unknown]
  - Heart rate increased [Unknown]
  - Diarrhoea [Unknown]
  - Rash pruritic [Unknown]
  - Blood pressure increased [Unknown]
  - Blood test abnormal [Unknown]
  - Rash [Unknown]
  - Off label use [Unknown]
